FAERS Safety Report 17507390 (Version 2)
Quarter: 2020Q2

REPORT INFORMATION
  Report Type: Spontaneous
  Country: FR (occurrence: FR)
  Receive Date: 20200306
  Receipt Date: 20200514
  Transmission Date: 20200713
  Serious: Yes (Other)
  Sender: FDA-Public Use
  Company Number: FR-REGENERON PHARMACEUTICALS, INC.-2020-23278

PATIENT

DRUGS (2)
  1. EYLEA [Suspect]
     Active Substance: AFLIBERCEPT
     Indication: TEMPORAL ARTERITIS
     Dosage: LAST DOSE PRIOR THE EVENT
     Route: 031
     Dates: start: 20200207, end: 20200207
  2. EYLEA [Suspect]
     Active Substance: AFLIBERCEPT
     Indication: AGE-RELATED MACULAR DEGENERATION
     Dosage: RIGHT EYE INJECTED FOR YEARS, LAST INTRAVITREAL INJECTION ON 07-FEB-2020
     Route: 031
     Dates: start: 20140110

REACTIONS (5)
  - Visual acuity reduced [Unknown]
  - Endophthalmitis [Unknown]
  - Retinal artery occlusion [Unknown]
  - Temporal arteritis [Unknown]
  - Bacteraemia [Unknown]

NARRATIVE: CASE EVENT DATE: 20200208
